FAERS Safety Report 10721602 (Version 2)
Quarter: 2017Q4

REPORT INFORMATION
  Report Type: Report from Study
  Country: None (occurrence: BR)
  Receive Date: 20150119
  Receipt Date: 20171017
  Transmission Date: 20180320
  Serious: Yes (Disabling, Other)
  Sender: FDA-Public Use
  Company Number: BR-ABBVIE-15K-020-1332609-00

PATIENT
  Age: 72 Year
  Sex: Male
  Weight: 84.5 kg

DRUGS (4)
  1. HUMIRA [Suspect]
     Active Substance: ADALIMUMAB
     Indication: CROHN^S DISEASE
     Route: 058
     Dates: start: 20110101, end: 20170910
  2. AZATHIOPRINE. [Concomitant]
     Active Substance: AZATHIOPRINE
     Indication: CROHN^S DISEASE
  3. AZATHIOPRINE. [Concomitant]
     Active Substance: AZATHIOPRINE
     Indication: COLITIS ULCERATIVE
     Route: 048
     Dates: start: 201410
  4. GABAPENTIN. [Concomitant]
     Active Substance: GABAPENTIN
     Indication: PRODUCT USED FOR UNKNOWN INDICATION

REACTIONS (43)
  - Gait inability [Recovering/Resolving]
  - Pneumonia [Unknown]
  - Gastrointestinal haemorrhage [Recovered/Resolved]
  - Back pain [Recovering/Resolving]
  - Dizziness [Recovered/Resolved]
  - Malaise [Unknown]
  - Haematochezia [Recovering/Resolving]
  - Chest pain [Recovered/Resolved]
  - Dysstasia [Unknown]
  - Fatigue [Not Recovered/Not Resolved]
  - Angina pectoris [Not Recovered/Not Resolved]
  - Joint swelling [Recovering/Resolving]
  - Red blood cell sedimentation rate abnormal [Unknown]
  - Colitis ulcerative [Unknown]
  - Pyrexia [Recovered/Resolved]
  - Spinal pain [Recovering/Resolving]
  - Asthenia [Recovered/Resolved]
  - Nervousness [Unknown]
  - Gastrointestinal pain [Unknown]
  - Loss of personal independence in daily activities [Unknown]
  - Intervertebral disc protrusion [Unknown]
  - Stress [Unknown]
  - Infection [Unknown]
  - Fatigue [Recovered/Resolved]
  - Weight decreased [Recovering/Resolving]
  - Immunodeficiency [Unknown]
  - Catarrh [Recovering/Resolving]
  - Speech disorder [Unknown]
  - Arthralgia [Recovering/Resolving]
  - Dyspnoea [Not Recovered/Not Resolved]
  - Pain in extremity [Recovering/Resolving]
  - Decreased appetite [Recovering/Resolving]
  - Osteoporosis [Unknown]
  - Osteoarthritis [Not Recovered/Not Resolved]
  - Sneezing [Unknown]
  - Pruritus [Unknown]
  - Gastrointestinal infection [Recovering/Resolving]
  - Peripheral swelling [Recovered/Resolved]
  - Neck pain [Recovering/Resolving]
  - Arthralgia [Recovering/Resolving]
  - Dizziness [Unknown]
  - Rhinitis [Unknown]
  - Cough [Recovering/Resolving]

NARRATIVE: CASE EVENT DATE: 201401
